FAERS Safety Report 20359550 (Version 1)
Quarter: 2022Q1

REPORT INFORMATION
  Report Type: Spontaneous
  Country: US (occurrence: US)
  Receive Date: 20220121
  Receipt Date: 20220121
  Transmission Date: 20220423
  Serious: Yes (Other)
  Sender: FDA-Public Use
  Company Number: US-SAGENT PHARMACEUTICALS-2022SAG000059

PATIENT

DRUGS (3)
  1. DOXORUBICIN HYDROCHLORIDE [Suspect]
     Active Substance: DOXORUBICIN HYDROCHLORIDE
     Indication: Neoplasm
     Dosage: 60 MG/M2, Q3W
     Route: 042
  2. SELINEXOR [Suspect]
     Active Substance: SELINEXOR
     Indication: Neoplasm
     Dosage: 60 MG, DAYS 1, 3, 8, AND 10 OF EACH 21-DAY CYCLE AS WELL AS 40-60 MG ONCE WEEKLY
     Route: 048
  3. CYCLOPHOSPHAMIDE [Suspect]
     Active Substance: CYCLOPHOSPHAMIDE
     Indication: Neoplasm
     Dosage: 600 MG/M2, Q3W
     Route: 042

REACTIONS (1)
  - Febrile neutropenia [Unknown]
